FAERS Safety Report 13005694 (Version 2)
Quarter: 2016Q4

REPORT INFORMATION
  Report Type: Spontaneous
  Country: US (occurrence: US)
  Receive Date: 20161207
  Receipt Date: 20161214
  Transmission Date: 20170207
  Serious: Yes (Other)
  Sender: FDA-Public Use
  Company Number: US-DRREDDYS-USA/USA/16/0085158

PATIENT
  Age: 10 Year
  Sex: Male

DRUGS (1)
  1. NAPROXEN SODIUM 220 MG [Suspect]
     Active Substance: NAPROXEN SODIUM
     Indication: PRODUCT USED FOR UNKNOWN INDICATION
     Route: 065

REACTIONS (3)
  - Product use issue [Unknown]
  - Foreign body [Unknown]
  - Abdominal pain [Unknown]
